FAERS Safety Report 8906246 (Version 1)
Quarter: 2012Q4

REPORT INFORMATION
  Report Type: Spontaneous
  Country: US (occurrence: None)
  Receive Date: 20121112
  Receipt Date: 20121112
  Transmission Date: 20130627
  Serious: No
  Sender: FDA-Public Use
  Company Number: None

PATIENT
  Age: 45 Year
  Sex: Female
  Weight: 61.69 kg

DRUGS (3)
  1. CYMBALTA [Suspect]
     Indication: ANXIETY
     Dosage: 30
90
     Dates: start: 20111001, end: 20121110
  2. CYMBALTA [Suspect]
     Indication: DEPRESSION
     Dosage: 30
90
     Dates: start: 20111001, end: 20121110
  3. CYMBALTA [Suspect]
     Indication: NECK PAIN
     Dosage: 30
90
     Dates: start: 20111001, end: 20121110

REACTIONS (2)
  - Asthenia [None]
  - Somnolence [None]
